FAERS Safety Report 11938788 (Version 1)
Quarter: 2016Q1

REPORT INFORMATION
  Report Type: Spontaneous
  Country: US (occurrence: US)
  Receive Date: 20160122
  Receipt Date: 20160122
  Transmission Date: 20160526
  Serious: Yes (Hospitalization, Other)
  Sender: FDA-Public Use
  Company Number: PHEH2016US000955

PATIENT
  Age: 62 Year
  Sex: Male
  Weight: 86.62 kg

DRUGS (1)
  1. FARYDAK [Suspect]
     Active Substance: PANOBINOSTAT
     Indication: PLASMA CELL MYELOMA
     Dosage: 15 MG, UNK (3X WEEK/2 WEEKS ON 1 WEEK OFF
     Route: 048
     Dates: start: 20150618, end: 20151029

REACTIONS (3)
  - Pancytopenia [Unknown]
  - Bacteraemia [Not Recovered/Not Resolved]
  - Pyrexia [Unknown]

NARRATIVE: CASE EVENT DATE: 20150807
